FAERS Safety Report 8716954 (Version 2)
Quarter: 2013Q1

REPORT INFORMATION
  Report Type: Spontaneous
  Country: US (occurrence: US)
  Receive Date: 20120810
  Receipt Date: 20130122
  Transmission Date: 20140127
  Serious: Yes (Hospitalization, Other)
  Sender: FDA-Public Use
  Company Number: US-BAYER-2012-079136

PATIENT
  Age: 44 Year
  Sex: Female
  Weight: 77.64 kg

DRUGS (14)
  1. YAZ [Suspect]
     Indication: MENOPAUSAL SYMPTOMS
  2. GIANVI [Suspect]
     Dosage: UNK
  3. YASMIN [Suspect]
  4. AMBIEN [Concomitant]
     Dosage: 10 MG, HS
     Route: 048
     Dates: start: 20100309
  5. ALLEGRA [Concomitant]
     Dosage: 180 MG, UNK
     Route: 048
     Dates: start: 20100309
  6. OMEPRAZOLE [Concomitant]
     Dosage: 20 MG, UNK
     Route: 048
     Dates: start: 20110312, end: 20120316
  7. ALEVE [Concomitant]
     Indication: PAIN
     Dosage: UNK UNK, PRN
     Route: 048
  8. CALCIUM +VIT D [Concomitant]
     Dosage: UNK UNK, BID
     Route: 048
  9. ZOFRAN [Concomitant]
     Dosage: 4 MG, 4-6 HOURS
     Route: 048
     Dates: start: 20110712
  10. CIPROFLOXACIN HCL [Concomitant]
     Dosage: 500 MG, BID
     Route: 048
     Dates: start: 20110712
  11. HYDROCODONE W/PARACETAMOL [Concomitant]
     Dosage: UNK
     Route: 048
     Dates: start: 20110719
  12. OPIUM ALKALOIDS AND DERIVATIVES [Concomitant]
     Dosage: UNK
     Route: 048
     Dates: start: 20110723
  13. FLUCONAZOLE [Concomitant]
     Dosage: 150 MG, UNK
     Route: 048
     Dates: start: 20110801
  14. NAPROSYN [Concomitant]
     Dosage: 500 MG, BID WITH FOOD
     Route: 048
     Dates: start: 20110922

REACTIONS (7)
  - Thrombophlebitis superficial [None]
  - Pulmonary embolism [None]
  - Cerebrovascular accident [None]
  - Deep vein thrombosis [None]
  - Myocardial infarction [None]
  - Injury [None]
  - Off label use [None]
